FAERS Safety Report 8311886-2 (Version None)
Quarter: 2012Q2

REPORT INFORMATION
  Report Type: 
  Country: None (occurrence: None)
  Receive Date: 20120425
  Receipt Date: 20120416
  Transmission Date: 20120825
  Serious: Yes (Death, Other)
  Sender: FDA-Public Use
  Company Number: US-ACTELION-A-NJ2012-63928

PATIENT

DRUGS (1)
  1. TRACLEER [Suspect]
     Indication: PULMONARY ARTERIAL HYPERTENSION
     Dosage: UNK
     Route: 048
     Dates: start: 20041117, end: 20120312

REACTIONS (4)
  - ENDOTRACHEAL INTUBATION [None]
  - DEATH [None]
  - DYSPNOEA [None]
  - LOSS OF CONSCIOUSNESS [None]
